FAERS Safety Report 6420607-X (Version None)
Quarter: 2009Q4

REPORT INFORMATION
  Report Type: 
  Country: None (occurrence: None)
  Receive Date: 20091027
  Receipt Date: 20091015
  Transmission Date: 20100525
  Serious: Yes (Hospitalization, Disabling, Other)
  Sender: FDA-Public Use
  Company Number: 2009-04301

PATIENT
  Age: 57 Year
  Sex: Female

DRUGS (18)
  1. VELCADE [Suspect]
     Indication: MULTIPLE MYELOMA
     Dates: start: 20080901
  2. REVLIMID [Suspect]
     Indication: MULTIPLE MYELOMA
     Dosage: 25 MG, ORAL; 15 MG, ORAL
     Route: 048
     Dates: start: 20080801, end: 20090302
  3. REVLIMID [Suspect]
     Indication: MULTIPLE MYELOMA
     Dosage: 25 MG, ORAL; 15 MG, ORAL
     Route: 048
     Dates: start: 20090101
  4. DOXIL [Suspect]
     Indication: MULTIPLE MYELOMA
     Dosage: 18 MG,
     Dates: start: 20081001
  5. DEXAMETHASONE TAB [Suspect]
     Indication: MULTIPLE MYELOMA
     Dosage: 40 MG,
     Dates: start: 20081001
  6. FLAGYL [Concomitant]
  7. FENTANYL-100 [Concomitant]
  8. DIFLUCAN [Concomitant]
  9. ALLOPURINOL [Concomitant]
  10. VICODIN [Concomitant]
  11. NEXIUM [Concomitant]
  12. WELLBUTRIN [Concomitant]
  13. LYRICA [Concomitant]
  14. XANAX [Concomitant]
  15. VITAMIN D [Concomitant]
  16. ZOMETA [Concomitant]
  17. DURAGESIC-100 [Concomitant]
  18. COUMADIN [Concomitant]

REACTIONS (45)
  - APHASIA [None]
  - ASTHENIA [None]
  - ATAXIA [None]
  - BALANCE DISORDER [None]
  - BLOOD CHLORIDE INCREASED [None]
  - CARBON DIOXIDE DECREASED [None]
  - CONTUSION [None]
  - COUGH [None]
  - DEHYDRATION [None]
  - ELECTROLYTE IMBALANCE [None]
  - FAILURE TO THRIVE [None]
  - HEART RATE INCREASED [None]
  - HYPERSOMNIA [None]
  - HYPERTENSION [None]
  - HYPOCALCAEMIA [None]
  - HYPOKALAEMIA [None]
  - HYPOMAGNESAEMIA [None]
  - INTERNATIONAL NORMALISED RATIO INCREASED [None]
  - KLEBSIELLA SEPSIS [None]
  - LUNG INFILTRATION [None]
  - MALIGNANT NEOPLASM PROGRESSION [None]
  - MEMORY IMPAIRMENT [None]
  - MENTAL STATUS CHANGES [None]
  - MULTIPLE MYELOMA [None]
  - MUSCLE SPASMS [None]
  - MUSCLE TWITCHING [None]
  - MYOCLONUS [None]
  - MYOPATHY [None]
  - NAUSEA [None]
  - NO THERAPEUTIC RESPONSE [None]
  - OEDEMA PERIPHERAL [None]
  - ORAL CANDIDIASIS [None]
  - PANCYTOPENIA [None]
  - PERFORMANCE STATUS DECREASED [None]
  - PNEUMONIA [None]
  - PURPURA [None]
  - RENAL FAILURE ACUTE [None]
  - RHONCHI [None]
  - SKIN ULCER [None]
  - TREMOR [None]
  - UROSEPSIS [None]
  - VENOUS THROMBOSIS LIMB [None]
  - VULVAL CANCER [None]
  - VULVAL ULCERATION [None]
  - WHEEZING [None]
